FAERS Safety Report 8579479-X (Version None)
Quarter: 2012Q3

REPORT INFORMATION
  Report Type: 
  Country: None (occurrence: None)
  Receive Date: 20120808
  Receipt Date: 20120731
  Transmission Date: 20120928
  Serious: Yes (Life-Threatening, Hospitalization)
  Sender: FDA-Public Use
  Company Number: US-GLAXOSMITHKLINE-A0984449A

PATIENT
  Age: 73 Year
  Sex: Male

DRUGS (10)
  1. ZOVIRAX [Concomitant]
  2. DIGOXIN [Concomitant]
  3. PREDNISONE TAB [Concomitant]
  4. ACYCLOVIR [Suspect]
     Indication: HERPES SIMPLEX
     Dates: start: 20120607, end: 20120618
  5. BACTROBAN [Concomitant]
  6. VALTREX [Suspect]
     Indication: PRODUCT USED FOR UNKNOWN INDICATION
     Dosage: 500MG TWICE PER DAY
     Route: 048
     Dates: start: 20120617, end: 20120623
  7. CLINDAMYCIN [Suspect]
     Indication: HERPES SIMPLEX
     Dates: start: 20120607, end: 20120618
  8. AMIODARONE HCL [Concomitant]
  9. OMEPRAZOLE [Concomitant]
  10. COUMADIN [Suspect]
     Indication: PRODUCT USED FOR UNKNOWN INDICATION
     Dosage: 7.5MG UNKNOWN
     Route: 065
     Dates: start: 20120607

REACTIONS (6)
  - GENERAL PHYSICAL HEALTH DETERIORATION [None]
  - EROSIVE OESOPHAGITIS [None]
  - INTERNATIONAL NORMALISED RATIO FLUCTUATION [None]
  - INTERNATIONAL NORMALISED RATIO INCREASED [None]
  - DYSPHAGIA [None]
  - RASH [None]
